FAERS Safety Report 7991611-5 (Version None)
Quarter: 2011Q4

REPORT INFORMATION
  Report Type: 
  Country: None (occurrence: None)
  Receive Date: 20111219
  Receipt Date: 20111018
  Transmission Date: 20120403
  Serious: No
  Sender: FDA-Public Use
  Company Number: US-ALLERGAN-1113737US

PATIENT
  Age: 82 Year
  Sex: Female

DRUGS (2)
  1. LUMIGAN [Suspect]
     Indication: INTRAOCULAR PRESSURE INCREASED
     Dosage: 1 GTT, QHS
     Route: 047
  2. DUREZOL [Suspect]
     Indication: POSTOPERATIVE CARE
     Dosage: UNK

REACTIONS (2)
  - PALPITATIONS [None]
  - CARDIAC FIBRILLATION [None]
